FAERS Safety Report 7050069-3 (Version None)
Quarter: 2010Q4

REPORT INFORMATION
  Report Type: 
  Country: None (occurrence: None)
  Receive Date: 20101012
  Receipt Date: 20100923
  Transmission Date: 20110411
  Serious: Yes (Disabling, Other)
  Sender: FDA-Public Use
  Company Number: ACO_02371_2010

PATIENT
  Sex: Female

DRUGS (1)
  1. AMPYRA [Suspect]
     Indication: MULTIPLE SCLEROSIS
     Dosage: (10 MG 1X/12 HOURS ORAL)
     Route: 048
     Dates: start: 20100903

REACTIONS (3)
  - BALANCE DISORDER [None]
  - HEMIPLEGIA [None]
  - HYPOAESTHESIA [None]
